FAERS Safety Report 7887504-4 (Version None)
Quarter: 2011Q4

REPORT INFORMATION
  Report Type: 
  Country: None (occurrence: None)
  Receive Date: 20111103
  Receipt Date: 20111025
  Transmission Date: 20120403
  Serious: Yes (Hospitalization)
  Sender: FDA-Public Use
  Company Number: FR-BIOGENIDEC-2011BI017673

PATIENT
  Age: 46 Year
  Sex: Male

DRUGS (7)
  1. TYSABRI [Suspect]
     Indication: MULTIPLE SCLEROSIS
     Route: 042
     Dates: start: 20080923
  2. PHLOROGLUCINOL [Concomitant]
     Indication: MUSCLE SPASMS
     Route: 048
     Dates: start: 20110416
  3. LYSINE ACETYLSALICYLATE [Concomitant]
     Indication: ANTIINFLAMMATORY THERAPY
     Route: 048
     Dates: start: 20110416
  4. HEPTAMINOL [Concomitant]
     Indication: HYPOTENSION
     Route: 048
     Dates: start: 20020601
  5. ESOMEPRAZOLE MAGNESIUM [Concomitant]
     Indication: GASTRIC ULCER
     Route: 048
     Dates: start: 20110416
  6. LEVETIRACETAM [Concomitant]
     Indication: CONVULSION PROPHYLAXIS
     Route: 048
     Dates: start: 20080901
  7. NEUROPATHIC PAIN TREATMENT [Concomitant]
     Indication: NEURALGIA

REACTIONS (1)
  - CHOLECYSTITIS ACUTE [None]
